FAERS Safety Report 17932902 (Version 1)
Quarter: 2020Q2

REPORT INFORMATION
  Report Type: Spontaneous
  Country: CA (occurrence: CA)
  Receive Date: 20200623
  Receipt Date: 20200623
  Transmission Date: 20200714
  Serious: Yes (Life-Threatening)
  Sender: FDA-Public Use
  Company Number: CA-PFIZER INC-2020241642

PATIENT
  Age: 5 Year
  Sex: Male
  Weight: 20 kg

DRUGS (41)
  1. METHOTREXATE SODIUM. [Suspect]
     Active Substance: METHOTREXATE SODIUM
     Dosage: 8.1 ML
     Route: 037
  2. FLUCONAZOLE. [Concomitant]
     Active Substance: FLUCONAZOLE
  3. HYDROXYZINE [Concomitant]
     Active Substance: HYDROXYZINE HYDROCHLORIDE
  4. KETAMINE [Concomitant]
     Active Substance: KETAMINE
  5. POLYETHYLENE GLYCOL [Concomitant]
     Active Substance: POLYETHYLENE GLYCOLS
  6. ETOPOSIDE. [Suspect]
     Active Substance: ETOPOSIDE
     Dosage: 165 MG
     Route: 042
  7. DIPHENHYDRAMINE. [Concomitant]
     Active Substance: DIPHENHYDRAMINE
  8. FOLIC ACID. [Concomitant]
     Active Substance: FOLIC ACID
  9. HEPARIN CALCIUM [Concomitant]
     Active Substance: HEPARIN CALCIUM
  10. MOXIFLOXACIN. [Concomitant]
     Active Substance: MOXIFLOXACIN
  11. MYCAMINE [Concomitant]
     Active Substance: MICAFUNGIN SODIUM
  12. POTASSIUM [Concomitant]
     Active Substance: POTASSIUM
  13. SULFAMETHOXAZOLE AND TRIMETHOPRIM [Concomitant]
     Active Substance: SULFAMETHOXAZOLE\TRIMETHOPRIM
  14. HYDROCORTISONE. [Suspect]
     Active Substance: HYDROCORTISONE
     Indication: BURKITT^S LYMPHOMA
     Dosage: UNK
     Route: 037
  15. RITUXAN [Suspect]
     Active Substance: RITUXIMAB
     Indication: BURKITT^S LYMPHOMA
     Dosage: 310 MG
     Route: 042
  16. CEFTAZIDIME. [Concomitant]
     Active Substance: CEFTAZIDIME
  17. DEXAMETHASONE. [Concomitant]
     Active Substance: DEXAMETHASONE
  18. DIMENHYDRINATE. [Concomitant]
     Active Substance: DIMENHYDRINATE
  19. METRONIDAZOLE. [Concomitant]
     Active Substance: METRONIDAZOLE
  20. PENTAMIDINE ISETHIONATE. [Concomitant]
     Active Substance: PENTAMIDINE ISETHIONATE
  21. VANCOMYCIN [Concomitant]
     Active Substance: VANCOMYCIN
  22. FUROSEMIDE. [Concomitant]
     Active Substance: FUROSEMIDE
  23. MEROPENEM. [Concomitant]
     Active Substance: MEROPENEM
  24. METOCLOPRAMIDE. [Concomitant]
     Active Substance: METOCLOPRAMIDE
  25. TOBRAMYCIN. [Concomitant]
     Active Substance: TOBRAMYCIN
  26. EPINEPHRINE. [Concomitant]
     Active Substance: EPINEPHRINE
  27. HYDROMORPHONE [Concomitant]
     Active Substance: HYDROMORPHONE
  28. ONDANSETRON [Concomitant]
     Active Substance: ONDANSETRON
  29. PIPERACILLIN AND TAZOBACTAM [Concomitant]
     Active Substance: PIPERACILLIN SODIUM\TAZOBACTAM SODIUM
  30. METHOTREXATE SODIUM. [Suspect]
     Active Substance: METHOTREXATE SODIUM
     Dosage: 9.6 ML
     Route: 037
  31. CYTARABINE. [Suspect]
     Active Substance: CYTARABINE
     Indication: BURKITT^S LYMPHOMA
     Dosage: 2500 MG
     Route: 042
  32. CLONIDINE. [Concomitant]
     Active Substance: CLONIDINE
  33. ETOPOSIDE. [Suspect]
     Active Substance: ETOPOSIDE
     Indication: BURKITT^S LYMPHOMA
     Dosage: 164 MG
     Route: 042
  34. ACETAMINOPHEN. [Concomitant]
     Active Substance: ACETAMINOPHEN
  35. CETIRIZINE [Concomitant]
     Active Substance: CETIRIZINE HYDROCHLORIDE
  36. RANITIDINE. [Concomitant]
     Active Substance: RANITIDINE
  37. CYTARABINE. [Suspect]
     Active Substance: CYTARABINE
     Dosage: 41 MG
     Route: 042
  38. HYDROCORTISONE. [Suspect]
     Active Substance: HYDROCORTISONE
     Dosage: UNK
     Route: 037
  39. RITUXAN [Suspect]
     Active Substance: RITUXIMAB
     Dosage: 310 MG
     Route: 042
  40. CIPROFLOXACIN. [Concomitant]
     Active Substance: CIPROFLOXACIN
  41. FILGRASTIM [Concomitant]
     Active Substance: FILGRASTIM

REACTIONS (3)
  - Aplastic anaemia [Unknown]
  - Transfusion [Unknown]
  - Febrile bone marrow aplasia [Unknown]
